FAERS Safety Report 20635351 (Version 11)
Quarter: 2022Q3

REPORT INFORMATION
  Report Type: Other
  Country: JP (occurrence: JP)
  Receive Date: 20220325
  Receipt Date: 20220908
  Transmission Date: 20221027
  Serious: Yes (Other)
  Sender: FDA-Public Use
  Company Number: JP-CHUGAI-2022009602

PATIENT
  Age: 79 Year
  Sex: Male
  Weight: 45.4 kg

DRUGS (5)
  1. ATEZOLIZUMAB [Suspect]
     Active Substance: ATEZOLIZUMAB
     Indication: Lung adenocarcinoma
     Dosage: 1200 MILLIGRAM
     Route: 041
     Dates: start: 20210517, end: 20210712
  2. CARBOPLATIN [Suspect]
     Active Substance: CARBOPLATIN
     Indication: Lung adenocarcinoma
     Route: 041
     Dates: start: 20210323, end: 2021
  3. CARBOPLATIN [Suspect]
     Active Substance: CARBOPLATIN
     Dosage: MOST RECENT DOSE : 14/JUN/2021
     Route: 041
     Dates: start: 20210517
  4. ABRAXANE [Suspect]
     Active Substance: PACLITAXEL
     Indication: Lung adenocarcinoma
     Dosage: UNK
     Route: 041
     Dates: start: 20210323, end: 2021
  5. ABRAXANE [Suspect]
     Active Substance: PACLITAXEL
     Dosage: MOST RECENT DOSE : 21/JUN/2021
     Route: 041
     Dates: start: 20210517

REACTIONS (3)
  - Pulmonary toxicity [Recovering/Resolving]
  - Myelosuppression [Recovering/Resolving]
  - Drug-induced liver injury [Recovering/Resolving]

NARRATIVE: CASE EVENT DATE: 20210531
